FAERS Safety Report 7034098-1 (Version None)
Quarter: 2010Q4

REPORT INFORMATION
  Report Type: 
  Country: None (occurrence: None)
  Receive Date: 20101008
  Receipt Date: 20100930
  Transmission Date: 20110411
  Serious: Yes (Hospitalization)
  Sender: FDA-Public Use
  Company Number: US-US-EMD SERONO, INC.-230665K05USA

PATIENT
  Sex: Female
  Weight: 80 kg

DRUGS (8)
  1. REBIF [Suspect]
     Indication: MULTIPLE SCLEROSIS
     Route: 058
     Dates: start: 20020322
  2. DIGOXIN [Concomitant]
     Indication: ATRIAL FIBRILLATION
  3. CARDIZEM [Concomitant]
     Indication: ATRIAL FIBRILLATION
  4. BACLOFEN [Concomitant]
     Indication: MULTIPLE SCLEROSIS
  5. LIPITOR [Concomitant]
     Indication: BLOOD CHOLESTEROL INCREASED
  6. RECLAST [Concomitant]
     Indication: OSTEOPOROSIS
  7. LASIX [Concomitant]
     Indication: FLUID RETENTION
  8. ALDACTONE [Concomitant]

REACTIONS (12)
  - ARTHRITIS [None]
  - BLOOD SODIUM DECREASED [None]
  - BLOOD SODIUM INCREASED [None]
  - DIVERTICULITIS [None]
  - ERYTHEMA [None]
  - FALL [None]
  - HEPATIC ENZYME INCREASED [None]
  - NAIL DISCOLOURATION [None]
  - POSTOPERATIVE WOUND COMPLICATION [None]
  - PULMONARY EMBOLISM [None]
  - SEPSIS [None]
  - THROMBOSIS [None]
